FAERS Safety Report 5952622-4 (Version None)
Quarter: 2008Q4

REPORT INFORMATION
  Report Type: 
  Country: None (occurrence: None)
  Receive Date: 20081028
  Receipt Date: 20080320
  Transmission Date: 20090506
  Serious: No
  Sender: FDA-Public Use
  Company Number: 08H-163-0314058-00

PATIENT
  Age: 70 Year
  Sex: Female
  Weight: 93.8946 kg

DRUGS (3)
  1. AMINOPHYLLIN INJ [Suspect]
     Dosage: 100 MG, ONCE, INTRAVENOUS
     Route: 042
     Dates: start: 20080320, end: 20080320
  2. PERSANTINE [Concomitant]
  3. SESTAMIBI (TECHNETIUM (99M TC) SESTAMIBI) [Concomitant]

REACTIONS (3)
  - CONVULSION [None]
  - DIZZINESS [None]
  - MUSCLE CONTRACTIONS INVOLUNTARY [None]
